FAERS Safety Report 11214492 (Version 2)
Quarter: 2015Q2

REPORT INFORMATION
  Report Type: Spontaneous
  Country: IT (occurrence: IT)
  Receive Date: 20150624
  Receipt Date: 20150624
  Transmission Date: 20150821
  Serious: Yes (Other)
  Sender: FDA-Public Use
  Company Number: IT-TEVA-571116ACC

PATIENT
  Age: 71 Year
  Sex: Male

DRUGS (4)
  1. CARBOPLATINO TEVA - FLACONE 600 MG/60 ML - TEVA PHARMA B.V. [Suspect]
     Active Substance: CARBOPLATIN
     Indication: HODGKIN^S DISEASE
     Dosage: 569 MG CYCLICAL
     Route: 042
     Dates: start: 20150214, end: 20150412
  2. SOLDESAM - 4 MG/ML SOLUZIONE INIETTABILE [Suspect]
     Active Substance: DEXAMETHASONE
     Indication: HODGKIN^S DISEASE
     Dosage: 8 MG CYCLICAL
     Route: 042
     Dates: start: 20150214, end: 20150412
  3. HOLOXAN - 1 G POLVERE PER SOLUZIONE INIETTABILE - BAXTER S.P.A. [Suspect]
     Active Substance: IFOSFAMIDE
     Indication: HODGKIN^S DISEASE
     Dosage: 1000 MG CYCLICAL, POWDER FOR SOLUTION FOR INJECTION
     Route: 042
     Dates: start: 20150215, end: 20150412
  4. ETOPOSIDE TEVA - FLACONE 50 ML 20MG/ML - TEVA PHARMA B.V. [Suspect]
     Active Substance: ETOPOSIDE
     Indication: HODGKIN^S DISEASE
     Dosage: 180 MG CYCLICAL
     Route: 042
     Dates: start: 20150214, end: 20150412

REACTIONS (2)
  - Herpes simplex [Recovered/Resolved]
  - Hyperpyrexia [Recovered/Resolved]

NARRATIVE: CASE EVENT DATE: 20150519
